FAERS Safety Report 13923346 (Version 4)
Quarter: 2017Q4

REPORT INFORMATION
  Report Type: Spontaneous
  Country: JP (occurrence: JP)
  Receive Date: 20170831
  Receipt Date: 20171213
  Transmission Date: 20180320
  Serious: Yes (Hospitalization, Other)
  Sender: FDA-Public Use
  Company Number: JP-BRISTOL-MYERS SQUIBB COMPANY-BMS-2017-060959

PATIENT
  Age: 77 Year
  Sex: Male
  Weight: 56 kg

DRUGS (15)
  1. LANSOPRAZOLE. [Suspect]
     Active Substance: LANSOPRAZOLE
     Indication: PROPHYLAXIS
     Dosage: 15 MG, QD
     Route: 048
     Dates: start: 20170506
  2. HEPARIN [Suspect]
     Active Substance: HEPARIN SODIUM
     Indication: ARTERIAL OCCLUSIVE DISEASE
     Dosage: UNK, QD
     Route: 041
     Dates: start: 20170501, end: 20170511
  3. HEPARIN [Suspect]
     Active Substance: HEPARIN SODIUM
     Indication: PERIPHERAL ARTERIAL OCCLUSIVE DISEASE
     Route: 065
  4. ACELIO [Concomitant]
     Active Substance: ACETAMINOPHEN
     Indication: PERIPHERAL ARTERIAL OCCLUSIVE DISEASE
     Route: 065
  5. DICLOFENAC NA [Suspect]
     Active Substance: DICLOFENAC SODIUM
     Indication: PERIPHERAL ARTERIAL OCCLUSIVE DISEASE
     Route: 065
  6. ACELIO [Concomitant]
     Active Substance: ACETAMINOPHEN
     Indication: ARTERIAL OCCLUSIVE DISEASE
     Dosage: 1000 MG, TID
     Route: 041
     Dates: start: 20170502, end: 20170517
  7. TRAMAL [Suspect]
     Active Substance: TRAMADOL
     Indication: ARTERIAL OCCLUSIVE DISEASE
     Dosage: 25 MG, QID
     Route: 048
     Dates: start: 20170508, end: 20170518
  8. APISTANDIN [Concomitant]
     Indication: PERIPHERAL ARTERIAL OCCLUSIVE DISEASE
     Route: 065
  9. BROTIZOLAM [Concomitant]
     Active Substance: BROTIZOLAM
     Indication: PROPHYLAXIS
     Dosage: .25 MG, QD
     Route: 048
     Dates: start: 20170510
  10. BELSOMRA [Concomitant]
     Active Substance: SUVOREXANT
     Indication: PROPHYLAXIS
     Dosage: 15 MG, UNK
     Route: 048
     Dates: start: 20170510
  11. DICLOFENAC NA [Suspect]
     Active Substance: DICLOFENAC SODIUM
     Indication: ARTERIAL OCCLUSIVE DISEASE
     Dosage: 50 MG, QD
     Route: 050
     Dates: start: 20170508, end: 20170518
  12. APISTANDIN [Concomitant]
     Indication: ARTERIAL OCCLUSIVE DISEASE
     Dosage: 60 ?G, BID
     Route: 041
     Dates: start: 20170502, end: 20170516
  13. ELIQUIS [Suspect]
     Active Substance: APIXABAN
     Indication: CEREBROVASCULAR ACCIDENT PROPHYLAXIS
     Dosage: 5 MG, BID
     Route: 048
     Dates: start: 20170510, end: 20170519
  14. MAGNESIUM OXIDE. [Suspect]
     Active Substance: MAGNESIUM OXIDE
     Indication: PROPHYLAXIS
     Dosage: 330 MG, TID
     Route: 048
     Dates: start: 20170508
  15. TRAMAL [Suspect]
     Active Substance: TRAMADOL
     Indication: PERIPHERAL ARTERIAL OCCLUSIVE DISEASE
     Route: 065

REACTIONS (2)
  - Drug eruption [Recovered/Resolved with Sequelae]
  - Arterial occlusive disease [Unknown]

NARRATIVE: CASE EVENT DATE: 20170511
